FAERS Safety Report 10855062 (Version 1)
Quarter: 2015Q1

REPORT INFORMATION
  Report Type: Spontaneous
  Country: US (occurrence: None)
  Receive Date: 20150218
  Receipt Date: 20150218
  Transmission Date: 20150721
  Serious: Yes (Life-Threatening, Hospitalization)
  Sender: FDA-Public Use
  Company Number: None

PATIENT
  Age: 38 Year
  Sex: Female
  Weight: 93.44 kg

DRUGS (1)
  1. ANTI-FUNGAL MEDICINE TERBINAFINE HCL 125 MG [Suspect]
     Active Substance: TERBINAFINE HYDROCHLORIDE
     Indication: ONYCHOMYCOSIS
     Dosage: TAKEN BY MOUTH
     Dates: start: 20150113, end: 20150203

REACTIONS (1)
  - Vasculitis [None]

NARRATIVE: CASE EVENT DATE: 20150202
